FAERS Safety Report 19830271 (Version 19)
Quarter: 2023Q4

REPORT INFORMATION
  Report Type: Report from Study
  Country: CO (occurrence: CO)
  Receive Date: 20210915
  Receipt Date: 20231225
  Transmission Date: 20240109
  Serious: Yes (Hospitalization)
  Sender: FDA-Public Use
  Company Number: NVSC2021CO151430

PATIENT
  Sex: Female
  Weight: 80 kg

DRUGS (9)
  1. COSENTYX [Suspect]
     Active Substance: SECUKINUMAB
     Indication: Psoriasis
     Dosage: 150 MG, QMO
     Route: 058
  2. COSENTYX [Suspect]
     Active Substance: SECUKINUMAB
     Dosage: 300 MG, QMO
     Route: 058
     Dates: start: 2018, end: 20210412
  3. COSENTYX [Suspect]
     Active Substance: SECUKINUMAB
     Dosage: 300 MG (2 AMPOULES OF 150 MG)
     Route: 065
     Dates: start: 202109
  4. COSENTYX [Suspect]
     Active Substance: SECUKINUMAB
     Dosage: 300 MG EVERY 8 DAYS DURING ONE MONTH
     Route: 065
  5. COSENTYX [Suspect]
     Active Substance: SECUKINUMAB
     Dosage: 300 MG, QMO
     Route: 058
  6. COSENTYX [Suspect]
     Active Substance: SECUKINUMAB
     Dosage: 300 MG, QMO
     Route: 058
  7. COSENTYX [Suspect]
     Active Substance: SECUKINUMAB
     Dosage: 150 MG
     Route: 065
  8. COSENTYX [Suspect]
     Active Substance: SECUKINUMAB
     Dosage: 300 MG, QMO
     Route: 058
  9. COSENTYX [Suspect]
     Active Substance: SECUKINUMAB
     Dosage: 150 MG, QMO
     Route: 058

REACTIONS (25)
  - Pulmonary mass [Recovered/Resolved]
  - Pulmonary calcification [Recovered/Resolved]
  - Stress [Unknown]
  - Asthenia [Unknown]
  - Malaise [Unknown]
  - Psoriasis [Recovered/Resolved]
  - Psoriasis [Unknown]
  - Skin lesion [Unknown]
  - Pruritus [Recovered/Resolved]
  - Skin exfoliation [Recovered/Resolved]
  - Throat lesion [Unknown]
  - Illness [Not Recovered/Not Resolved]
  - Depression [Unknown]
  - Skin swelling [Unknown]
  - Arthralgia [Unknown]
  - Drug intolerance [Unknown]
  - Influenza [Unknown]
  - Fear [Unknown]
  - Nail disorder [Unknown]
  - Dry skin [Unknown]
  - Skin plaque [Unknown]
  - Hypersensitivity [Unknown]
  - Inappropriate schedule of product administration [Unknown]
  - Intercepted product administration error [Unknown]
  - Incorrect dose administered [Unknown]
